FAERS Safety Report 17859434 (Version 1)
Quarter: 2020Q2

REPORT INFORMATION
  Report Type: Spontaneous
  Country: US (occurrence: US)
  Receive Date: 20200603
  Receipt Date: 20200603
  Transmission Date: 20200714
  Serious: No
  Sender: FDA-Public Use
  Company Number: None

PATIENT
  Age: 87 Year
  Sex: Male

DRUGS (1)
  1. ZYTIGA [Suspect]
     Active Substance: ABIRATERONE ACETATE
     Dosage: START DATE: 08/05/2019 - 04/22/2019
     Route: 048
     Dates: end: 20190422

REACTIONS (5)
  - Therapy cessation [None]
  - Fatigue [None]
  - Diarrhoea haemorrhagic [None]
  - Hot flush [None]
  - Diarrhoea [None]

NARRATIVE: CASE EVENT DATE: 20200422
